FAERS Safety Report 11337922 (Version 1)
Quarter: 2015Q3

REPORT INFORMATION
  Report Type: Spontaneous
  Country: US (occurrence: US)
  Receive Date: 20150803
  Receipt Date: 20150803
  Transmission Date: 20151125
  Serious: Yes (Hospitalization, Disabling, Other)
  Sender: FDA-Public Use
  Company Number: US-ELI_LILLY_AND_COMPANY-US200911005924

PATIENT
  Sex: Female
  Weight: 70.3 kg

DRUGS (2)
  1. ZYPREXA [Suspect]
     Active Substance: OLANZAPINE
     Dosage: 1 D/F, UNK
     Dates: start: 2003
  2. ZYPREXA [Suspect]
     Active Substance: OLANZAPINE
     Dosage: 15 MG, DAILY (1/D)
     Dates: end: 2007

REACTIONS (8)
  - Diabetic coma [Unknown]
  - Blood cholesterol increased [Unknown]
  - Vision blurred [Unknown]
  - Hypertension [Unknown]
  - Weight increased [Unknown]
  - Hyperglycaemia [Unknown]
  - Blood triglycerides increased [Unknown]
  - Diabetes mellitus [Unknown]

NARRATIVE: CASE EVENT DATE: 2004
